FAERS Safety Report 6061417-5 (Version None)
Quarter: 2009Q1

REPORT INFORMATION
  Report Type: 
  Country: None (occurrence: None)
  Receive Date: 20090202
  Receipt Date: 20090122
  Transmission Date: 20090719
  Serious: Yes (Hospitalization)
  Sender: FDA-Public Use
  Company Number: NO-ASTRAZENECA-2009SE00452

PATIENT
  Age: 39 Year
  Sex: Male

DRUGS (5)
  1. NEXIUM [Suspect]
     Indication: DYSPEPSIA
     Route: 048
     Dates: end: 20081114
  2. EFFEXOR [Concomitant]
     Route: 048
  3. SELO-ZOK [Concomitant]
     Route: 048
  4. NORVASC [Concomitant]
     Route: 048
  5. ALBYL-E [Concomitant]
     Route: 048

REACTIONS (2)
  - HYPOCALCAEMIA [None]
  - HYPOMAGNESAEMIA [None]
